FAERS Safety Report 5156862-6 (Version None)
Quarter: 2006Q4

REPORT INFORMATION
  Report Type: 
  Country: None (occurrence: None)
  Receive Date: 20061115
  Receipt Date: 20061106
  Transmission Date: 20070319
  Serious: Yes (Other)
  Sender: FDA-Public Use
  Company Number: 2006135668

PATIENT
  Age: 40 Year
  Sex: Male

DRUGS (2)
  1. LIPITOR [Suspect]
     Dosage: 10 MG, ORAL
     Route: 048
     Dates: start: 20050901, end: 20051001
  2. DRUG, UNSPECIFIED (DRUG, UNSPECIFIED) [Suspect]

REACTIONS (1)
  - LIVER DISORDER [None]
